FAERS Safety Report 18595316 (Version 2)
Quarter: 2020Q4

REPORT INFORMATION
  Report Type: Spontaneous
  Country: US (occurrence: US)
  Receive Date: 20201209
  Receipt Date: 20201211
  Transmission Date: 20210114
  Serious: Yes (Death)
  Sender: FDA-Public Use
  Company Number: US-PFIZER INC-2020397546

PATIENT
  Age: 77 Year
  Sex: Female
  Weight: 68.03 kg

DRUGS (1)
  1. IBRANCE [Suspect]
     Active Substance: PALBOCICLIB
     Indication: BREAST CANCER METASTATIC
     Dosage: 100 MG, CYCLIC(EVERY DAY FOR 21 DAYS OFF FOR 7)
     Dates: start: 202006, end: 202008

REACTIONS (2)
  - Weight decreased [Unknown]
  - Neoplasm progression [Fatal]

NARRATIVE: CASE EVENT DATE: 202011
